FAERS Safety Report 7908873-2 (Version None)
Quarter: 2011Q4

REPORT INFORMATION
  Report Type: 
  Country: None (occurrence: None)
  Receive Date: 20111111
  Receipt Date: 20100222
  Transmission Date: 20120403
  Serious: No
  Sender: FDA-Public Use
  Company Number: US-BAYER-201015613NA

PATIENT
  Age: 39 Year
  Sex: Female

DRUGS (1)
  1. CLIMARA [Suspect]
     Indication: OESTROGEN REPLACEMENT THERAPY
     Dosage: 100 MCG/24HR, UNK
     Route: 003
     Dates: start: 20091124

REACTIONS (2)
  - APPLICATION SITE VESICLES [None]
  - APPLICATION SITE ERYTHEMA [None]
